FAERS Safety Report 15677830 (Version 2)
Quarter: 2018Q4

REPORT INFORMATION
  Report Type: Spontaneous
  Country: BR (occurrence: BR)
  Receive Date: 20181130
  Receipt Date: 20181205
  Transmission Date: 20190205
  Serious: Yes (Life-Threatening, Other)
  Sender: FDA-Public Use
  Company Number: PHHY2018BR170793

PATIENT
  Sex: Female
  Weight: 48 kg

DRUGS (7)
  1. FLUOXETINE [Suspect]
     Active Substance: FLUOXETINE HYDROCHLORIDE
     Dosage: 10 MG, QD (AFTERNOON)
     Route: 048
     Dates: start: 201804
  2. OLCADIL [Suspect]
     Active Substance: CLOXAZOLAM
     Indication: DEPRESSION
     Dosage: 1 DF, QD
     Route: 048
     Dates: start: 1999, end: 201803
  3. FLUOXETINE [Suspect]
     Active Substance: FLUOXETINE HYDROCHLORIDE
     Indication: DEPRESSION
     Dosage: 20 MG, QD (MORNING)
     Route: 048
     Dates: start: 201804
  4. FRONTAL [Suspect]
     Active Substance: ALPRAZOLAM
     Indication: SLEEP DISORDER
     Route: 065
  5. CITONEURIN [Concomitant]
     Active Substance: CYANOCOBALAMIN\PYRIDOXINE HYDROCHLORIDE\THIAMINE
     Indication: VITAMIN B12
     Dosage: 1 DF, QD
     Route: 065
     Dates: start: 201712
  6. FLUOXETINE [Suspect]
     Active Substance: FLUOXETINE HYDROCHLORIDE
     Indication: SLEEP DISORDER
     Dosage: 0.5 DF, QD
     Route: 065
  7. QUETIAPINE. [Suspect]
     Active Substance: QUETIAPINE
     Indication: SLEEP DISORDER
     Dosage: 0.5 DF, QD
     Route: 048
     Dates: start: 201806

REACTIONS (29)
  - Agitation [Recovering/Resolving]
  - Ill-defined disorder [Not Recovered/Not Resolved]
  - Fear of death [Recovering/Resolving]
  - Osteoarthritis [Recovering/Resolving]
  - Exostosis [Recovering/Resolving]
  - Ligament rupture [Recovered/Resolved]
  - Hypertrophy of tongue papillae [Recovered/Resolved]
  - General physical condition abnormal [Recovering/Resolving]
  - Psychiatric symptom [Not Recovered/Not Resolved]
  - Tremor [Not Recovered/Not Resolved]
  - Tooth injury [Recovered/Resolved]
  - Spinal disorder [Not Recovered/Not Resolved]
  - Fear [Recovering/Resolving]
  - Psychomotor hyperactivity [Recovering/Resolving]
  - Muscle disorder [Recovering/Resolving]
  - Tendonitis [Recovered/Resolved]
  - Sleep disorder [Recovered/Resolved]
  - Dysgraphia [Not Recovered/Not Resolved]
  - Balance disorder [Not Recovered/Not Resolved]
  - Chondropathy [Recovered/Resolved]
  - Pain [Recovered/Resolved]
  - Memory impairment [Not Recovered/Not Resolved]
  - Arthropathy [Not Recovered/Not Resolved]
  - Arthritis [Recovering/Resolving]
  - Muscle disorder [Not Recovered/Not Resolved]
  - Hypovitaminosis [Recovering/Resolving]
  - Joint dislocation [Recovered/Resolved]
  - Bursitis [Recovered/Resolved]
  - Depression [Recovering/Resolving]

NARRATIVE: CASE EVENT DATE: 2003
